FAERS Safety Report 10252992 (Version 1)
Quarter: 2014Q2

REPORT INFORMATION
  Report Type: Spontaneous
  Country: US (occurrence: None)
  Receive Date: 20140618
  Receipt Date: 20140618
  Transmission Date: 20141212
  Serious: No
  Sender: FDA-Public Use
  Company Number: None

PATIENT
  Age: 84 Year
  Sex: Female
  Weight: 63.5 kg

DRUGS (17)
  1. WARFARIN [Suspect]
     Indication: ATRIAL FIBRILLATION
     Route: 048
     Dates: start: 201206
  2. PACEMAKER [Concomitant]
  3. SIMVASTATIN [Concomitant]
  4. HYDROCHLOROTHIAZIDE [Concomitant]
  5. PROAIR [Concomitant]
  6. ALENDRONATE SODIUM [Concomitant]
  7. CITALOPRAM HBR [Concomitant]
  8. FERROUS SULFATE [Concomitant]
  9. DIOVAN [Concomitant]
  10. OMEPRAZOLE MAGNESIUM [Concomitant]
  11. ASPIRIN [Concomitant]
  12. SUPER B COMPLEX [Concomitant]
  13. CALCIUM D [Concomitant]
  14. TYLENOL [Concomitant]
  15. CLARITIN [Concomitant]
  16. SENSOR MULTI-VIT [Concomitant]
  17. THERA TEARS [Concomitant]

REACTIONS (2)
  - Dysgeusia [None]
  - Dysgeusia [None]
